FAERS Safety Report 10378080 (Version 1)
Quarter: 2014Q1

REPORT INFORMATION
  Report Type: Spontaneous
  Country: US (occurrence: None)
  Receive Date: 20140306
  Receipt Date: 20140306
  Transmission Date: 20141002
  Serious: Yes (Other)
  Sender: FDA-Public Use
  Company Number: 163-21880-13014915

PATIENT
  Age: 54 Year
  Sex: Female

DRUGS (5)
  1. REVLIMID (LENALIDOMIDE) (CAPSULES) [Suspect]
     Indication: LEUKAEMIA
     Route: 048
     Dates: start: 20130107, end: 20130117
  2. VELCADE (LENALIDOMIDE) [Concomitant]
  3. ASPIRIN (ACETYLSALICYLIC ACID) [Concomitant]
  4. ACYCLOVIR (ACICLOVIR) [Concomitant]
  5. OXYCODONE [Concomitant]

REACTIONS (1)
  - Neutropenia [None]
